FAERS Safety Report 12396300 (Version 1)
Quarter: 2016Q2

REPORT INFORMATION
  Report Type: Spontaneous
  Country: DK (occurrence: DK)
  Receive Date: 20160524
  Receipt Date: 20160524
  Transmission Date: 20160815
  Serious: Yes (Other)
  Sender: FDA-Public Use
  Company Number: DK-ACCORD-040743

PATIENT
  Age: 25 Year
  Sex: Male

DRUGS (4)
  1. MORPHINE [Suspect]
     Active Substance: MORPHINE
     Indication: BACK PAIN
     Dosage: 20-40 MG WITH THE ADDITIONAL POSSIBILITY OF 10 MG X  4?P.N.
  2. TRAMADOL/TRAMADOL HYDROCHLORIDE [Suspect]
     Active Substance: TRAMADOL HYDROCHLORIDE
     Indication: BACK PAIN
     Dosage: TOTAL DAILY DOSE OF 150-400 MG
  3. FENTANYL/FENTANYL CITRATE [Suspect]
     Active Substance: FENTANYL
     Indication: BACK PAIN
     Dosage: RECEIVED FENTANYL PATCH AT 25 MCG PER HOUR
  4. CHLORZOXAZONE. [Suspect]
     Active Substance: CHLORZOXAZONE
     Indication: BACK PAIN

REACTIONS (2)
  - Adrenal insufficiency [Recovering/Resolving]
  - Weight decreased [None]
